FAERS Safety Report 13181264 (Version 1)
Quarter: 2017Q1

REPORT INFORMATION
  Report Type: Spontaneous
  Country: US (occurrence: US)
  Receive Date: 20170202
  Receipt Date: 20170202
  Transmission Date: 20170428
  Serious: No
  Sender: FDA-Public Use
  Company Number: US-SMITH AND NEPHEW, INC-2016SMT01049

PATIENT
  Age: 64 Year
  Sex: Male
  Weight: 88.44 kg

DRUGS (19)
  1. REGRANEX [Suspect]
     Active Substance: BECAPLERMIN
     Indication: DIABETIC FOOT
     Dosage: UNK UNK, 1X/DAY
     Route: 061
     Dates: start: 20161027, end: 20161118
  2. HUMALOG 75/25 [Concomitant]
     Dosage: 5 U, 1X/DAY
  3. PRAVASTATIN. [Concomitant]
     Active Substance: PRAVASTATIN
     Dosage: 20 MG, 1X/DAY
  4. REGRANEX [Suspect]
     Active Substance: BECAPLERMIN
     Dosage: UNK
     Dates: start: 20161125
  5. LASIX [Concomitant]
     Active Substance: FUROSEMIDE
     Dosage: 40 MG, 1X/DAY
  6. PLAVIX [Concomitant]
     Active Substance: CLOPIDOGREL BISULFATE
     Dosage: 75 MG, 1X/DAY
  7. BENAZEPRIL [Concomitant]
     Active Substance: BENAZEPRIL HYDROCHLORIDE
     Dosage: 20 MG, 1X/DAY
  8. METOPROLOL. [Concomitant]
     Active Substance: METOPROLOL
     Dosage: 12.5 MG, 2X/DAY
  9. GABAPENTIN. [Concomitant]
     Active Substance: GABAPENTIN
     Dosage: 400 MG, 3X/DAY
  10. HUMALOG 75/25 [Concomitant]
     Dosage: 15 U, 1X/DAY
  11. HUMALOG 75/25 [Concomitant]
     Dosage: 5 U, AS NEEDED
  12. ASPIRIN. [Concomitant]
     Active Substance: ASPIRIN
  13. SUPPER C VITAMIN [Concomitant]
  14. ZINC. [Concomitant]
     Active Substance: ZINC
  15. B- VITAMIN [Concomitant]
  16. FENTANYL. [Concomitant]
     Active Substance: FENTANYL
  17. POTASSIUM ER [Concomitant]
     Dosage: 20 MEQ, 1X/DAY
  18. NORVASC [Concomitant]
     Active Substance: AMLODIPINE BESYLATE
     Dosage: 10 MG, 1X/DAY
  19. METFORMIN [Concomitant]
     Active Substance: METFORMIN HYDROCHLORIDE
     Dosage: 500 MG, 2X/DAY

REACTIONS (2)
  - Application site erythema [Recovered/Resolved]
  - Wound infection [Recovered/Resolved]

NARRATIVE: CASE EVENT DATE: 20161110
